FAERS Safety Report 21837845 (Version 1)
Quarter: 2023Q1

REPORT INFORMATION
  Report Type: Spontaneous
  Country: US (occurrence: US)
  Receive Date: 20230109
  Receipt Date: 20230109
  Transmission Date: 20230418
  Serious: Yes (Other)
  Sender: FDA-Public Use
  Company Number: US-PFIZER INC-PV202300001514

PATIENT
  Age: 78 Year
  Sex: Female
  Weight: 79.37 kg

DRUGS (5)
  1. AZULFIDINE [Suspect]
     Active Substance: SULFASALAZINE
     Dosage: 3000 MG
     Dates: start: 201406
  2. XELJANZ [Suspect]
     Active Substance: TOFACITINIB CITRATE
     Indication: Rheumatoid arthritis
     Dosage: 5 MG
     Route: 048
     Dates: start: 201506, end: 201602
  3. FOLIC ACID [Concomitant]
     Active Substance: FOLIC ACID
     Dosage: UNK
  4. PLAQUENIL [Concomitant]
     Active Substance: HYDROXYCHLOROQUINE SULFATE
     Indication: Rheumatoid arthritis
     Dosage: 200 MG, DAILY
     Dates: start: 201201
  5. PREDNISONE [Concomitant]
     Active Substance: PREDNISONE
     Indication: Rheumatoid arthritis
     Dosage: UNK
     Dates: start: 202004

REACTIONS (5)
  - Pulmonary hypertension [Not Recovered/Not Resolved]
  - Therapeutic product effect decreased [Unknown]
  - Anaemia [Unknown]
  - Orthostatic hypotension [Unknown]
  - Bronchitis [Unknown]

NARRATIVE: CASE EVENT DATE: 20160101
